FAERS Safety Report 25930197 (Version 1)
Quarter: 2025Q4

REPORT INFORMATION
  Report Type: Spontaneous
  Country: US (occurrence: None)
  Receive Date: 20251015
  Receipt Date: 20251015
  Transmission Date: 20260118
  Serious: No
  Sender: FDA-CTU
  Company Number: None

PATIENT

DRUGS (1)
  1. IMATINIB [Suspect]
     Active Substance: IMATINIB

REACTIONS (5)
  - Fatigue [None]
  - Epigastric discomfort [None]
  - Nausea [None]
  - Urinary tract infection [None]
  - Therapy interrupted [None]
